FAERS Safety Report 20103120 (Version 1)
Quarter: 2021Q4

REPORT INFORMATION
  Report Type: Spontaneous
  Country: US (occurrence: US)
  Receive Date: 20211123
  Receipt Date: 20211123
  Transmission Date: 20220303
  Serious: Yes (Hospitalization)
  Sender: FDA-Public Use
  Company Number: US-Teikoku Pharma USA-TPU2021-01122

PATIENT
  Sex: Female
  Weight: 90.346 kg

DRUGS (11)
  1. LIDOCAINE PATCH [Suspect]
     Active Substance: LIDOCAINE
     Indication: Back pain
     Route: 065
  2. SINGULAIR [Concomitant]
     Active Substance: MONTELUKAST SODIUM
  3. ATENOLOL [Concomitant]
     Active Substance: ATENOLOL
     Indication: Hypertension
  4. LASIX [Concomitant]
     Active Substance: FUROSEMIDE
     Indication: Hypertension
  5. NEURONTIN [Concomitant]
     Active Substance: GABAPENTIN
     Indication: Back pain
  6. PRILOSEC [Concomitant]
     Active Substance: OMEPRAZOLE MAGNESIUM
  7. Sevella [Concomitant]
  8. KADIAN [Concomitant]
     Active Substance: MORPHINE SULFATE
     Indication: Back pain
  9. DILAUDID [Concomitant]
     Active Substance: HYDROMORPHONE HYDROCHLORIDE
     Indication: Breakthrough pain
  10. AMITRIPTYLINE [Concomitant]
     Active Substance: AMITRIPTYLINE
     Indication: Nerve injury
  11. TRULANCE [Concomitant]
     Active Substance: PLECANATIDE
     Indication: Laxative supportive care

REACTIONS (7)
  - Peritoneal abscess [Recovered/Resolved]
  - Weight decreased [Unknown]
  - Hypertension [Unknown]
  - Knee arthroplasty [Unknown]
  - Knee arthroplasty [Unknown]
  - Allergic sinusitis [Unknown]
  - Impaired gastric emptying [Unknown]

NARRATIVE: CASE EVENT DATE: 20120101
